FAERS Safety Report 5098280-5 (Version None)
Quarter: 2006Q3

REPORT INFORMATION
  Report Type: 
  Country: None (occurrence: None)
  Receive Date: 20060906
  Receipt Date: 20060412
  Transmission Date: 20061208
  Serious: Yes (Life-Threatening, Hospitalization)
  Sender: FDA-Public Use
  Company Number: DE-AVENTIS-200611077DE

PATIENT
  Age: 36 Year
  Sex: Male

DRUGS (2)
  1. KETEK [Suspect]
     Indication: SINOBRONCHITIS
     Route: 048
     Dates: start: 20060331, end: 20060401
  2. AMBRODOXY [Concomitant]
     Indication: SINOBRONCHITIS
     Route: 048
     Dates: start: 20060327, end: 20060331

REACTIONS (4)
  - ABDOMINAL WALL ABSCESS [None]
  - FALL [None]
  - POLYTRAUMATISM [None]
  - PSYCHOTIC DISORDER [None]
